FAERS Safety Report 21644352 (Version 1)
Quarter: 2022Q4

REPORT INFORMATION
  Report Type: Spontaneous
  Country: US (occurrence: US)
  Receive Date: 20221125
  Receipt Date: 20221125
  Transmission Date: 20230113
  Serious: No
  Sender: FDA-Public Use
  Company Number: US-SEPTODONT-2022006730

PATIENT

DRUGS (1)
  1. CARBOCAINE WITH NEO-COBEFRIN [Suspect]
     Active Substance: LEVONORDEFRIN\MEPIVACAINE HYDROCHLORIDE
     Indication: Dental local anaesthesia
     Route: 004
     Dates: start: 20220121, end: 20220121

REACTIONS (1)
  - Drug ineffective [Recovered/Resolved]

NARRATIVE: CASE EVENT DATE: 20220121
